FAERS Safety Report 5285122-8 (Version None)
Quarter: 2007Q2

REPORT INFORMATION
  Report Type: 
  Country: None (occurrence: None)
  Receive Date: 20070403
  Receipt Date: 20070322
  Transmission Date: 20071010
  Serious: Yes (Death, Life-Threatening, Hospitalization)
  Sender: FDA-Public Use
  Company Number: NL-PFIZER INC-2006130464

PATIENT
  Sex: Female
  Weight: 55 kg

DRUGS (18)
  1. SU-011,248 [Suspect]
     Indication: METASTATIC RENAL CELL CARCINOMA
     Route: 048
     Dates: start: 20060627, end: 20061103
  2. METOPROLOL SUCCINATE [Concomitant]
     Route: 048
     Dates: start: 20020101
  3. AMLODIPINE [Concomitant]
     Route: 048
     Dates: start: 20060901
  4. FENYTOIN [Concomitant]
     Route: 042
     Dates: start: 20061016, end: 20061023
  5. FENYTOIN [Concomitant]
  6. DEXAMETHASONE [Concomitant]
     Route: 051
  7. LEVETIRACETAM [Concomitant]
     Route: 048
     Dates: start: 20061019, end: 20061101
  8. FUROSEMIDE [Concomitant]
     Route: 042
     Dates: start: 20061027, end: 20061027
  9. FUROSEMIDE [Concomitant]
     Route: 042
     Dates: start: 20061101, end: 20061102
  10. ACETAMINOPHEN [Concomitant]
     Route: 048
  11. NADROPARIN [Concomitant]
     Route: 058
  12. LORAZEPAM [Concomitant]
     Route: 048
  13. CLONAZEPAM [Concomitant]
     Route: 042
  14. PANTOPRAZOLE [Concomitant]
     Route: 042
  15. POLYETHYLENE GLYCOL [Concomitant]
     Route: 048
  16. PAMIDRONATE DISODIUM [Concomitant]
     Route: 042
     Dates: start: 20061101, end: 20061102
  17. AMOXICILLIN + CLAVULANATE POTASSIUM [Concomitant]
     Route: 042
     Dates: start: 20061101, end: 20061102
  18. DIAZEPAM [Concomitant]
     Route: 054
     Dates: start: 20061016, end: 20061016

REACTIONS (4)
  - DISEASE PROGRESSION [None]
  - GASTROINTESTINAL HAEMORRHAGE [None]
  - METASTATIC RENAL CELL CARCINOMA [None]
  - RENAL IMPAIRMENT [None]
